FAERS Safety Report 8131262-5 (Version None)
Quarter: 2012Q1

REPORT INFORMATION
  Report Type: 
  Country: None (occurrence: None)
  Receive Date: 20120103
  Receipt Date: 20110919
  Transmission Date: 20120608
  Serious: No
  Sender: FDA-Public Use
  Company Number: AE-2011-001674

PATIENT
  Age: 33 Year
  Sex: Male
  Weight: 81.6475 kg

DRUGS (6)
  1. CELEXA [Concomitant]
  2. RIBAVIRIN [Concomitant]
  3. PEGASYS [Concomitant]
  4. NEURONTON (GABAPENTIN) [Concomitant]
  5. INCIVEK [Suspect]
     Dosage: 2250 MG (750 MG,1 IN 8 HR),ORAL
     Route: 048
     Dates: start: 20110916
  6. TRAZODONE HCL [Concomitant]

REACTIONS (1)
  - HAEMORRHOIDS [None]
